FAERS Safety Report 17992666 (Version 3)
Quarter: 2021Q2

REPORT INFORMATION
  Report Type: Spontaneous
  Country: IL (occurrence: IL)
  Receive Date: 20200708
  Receipt Date: 20210628
  Transmission Date: 20210717
  Serious: Yes (Other)
  Sender: FDA-Public Use
  Company Number: IL-TEVA-2020-IL-1797765

PATIENT
  Age: 77 Year
  Sex: Male

DRUGS (4)
  1. ROSUVASTATIN TEVA [Suspect]
     Active Substance: ROSUVASTATIN
     Dosage: ONCE AT THE EVENING
     Route: 065
     Dates: start: 201703, end: 2019
  2. COUMADIN [Concomitant]
     Active Substance: WARFARIN SODIUM
     Dates: start: 201703
  3. ELIQUIS [Concomitant]
     Active Substance: APIXABAN
     Dates: start: 201703
  4. RAMIPRIL. [Concomitant]
     Active Substance: RAMIPRIL
     Dates: start: 2017

REACTIONS (1)
  - Atrial fibrillation [Unknown]
